FAERS Safety Report 6535259-8 (Version None)
Quarter: 2010Q1

REPORT INFORMATION
  Report Type: 
  Country: None (occurrence: None)
  Receive Date: 20100113
  Receipt Date: 20100105
  Transmission Date: 20100710
  Serious: Yes (Other)
  Sender: FDA-Public Use
  Company Number: FR-ELI_LILLY_AND_COMPANY-FR200909006730

PATIENT
  Sex: Female
  Weight: 52 kg

DRUGS (5)
  1. FORTEO [Suspect]
     Indication: OSTEOPOROSIS
     Dosage: 20 UG, DAILY (1/D)
     Route: 058
     Dates: start: 20080721, end: 20090907
  2. CACIT D3 [Concomitant]
     Indication: OSTEOPOROSIS
     Route: 048
     Dates: start: 20040101
  3. LEXOMIL [Concomitant]
     Route: 048
  4. LAROXYL [Concomitant]
     Route: 048
  5. DIANTALVIC [Concomitant]
     Indication: PAIN
     Route: 048

REACTIONS (2)
  - OSTEITIS DEFORMANS [None]
  - SPINAL FRACTURE [None]
